FAERS Safety Report 12269410 (Version 2)
Quarter: 2016Q2

REPORT INFORMATION
  Report Type: Spontaneous
  Country: US (occurrence: US)
  Receive Date: 20160414
  Receipt Date: 20160429
  Transmission Date: 20160815
  Serious: Yes (Other)
  Sender: FDA-Public Use
  Company Number: US-BAYER-2016-066435

PATIENT
  Age: 31 Year
  Sex: Female
  Weight: 69.39 kg

DRUGS (1)
  1. MIRENA [Suspect]
     Active Substance: LEVONORGESTREL
     Indication: CONTRACEPTION
     Dosage: 20 MCG/24HR, CONT
     Route: 015
     Dates: start: 20110121, end: 20160318

REACTIONS (6)
  - Complication of device removal [None]
  - Embedded device [None]
  - Device issue [Recovered/Resolved]
  - Device difficult to use [None]
  - Device breakage [None]
  - Product use issue [None]

NARRATIVE: CASE EVENT DATE: 20160318
